FAERS Safety Report 21377231 (Version 1)
Quarter: 2022Q3

REPORT INFORMATION
  Report Type: Spontaneous
  Country: GR (occurrence: GR)
  Receive Date: 20220926
  Receipt Date: 20220926
  Transmission Date: 20221026
  Serious: Yes (Hospitalization, Other)
  Sender: FDA-Public Use
  Company Number: EG-HALEON-GRCH2022EME034984

PATIENT

DRUGS (2)
  1. IBUPROFEN [Suspect]
     Active Substance: IBUPROFEN
     Indication: Pyrexia
     Dosage: UNK
  2. CEFACLOR [Suspect]
     Active Substance: CEFACLOR
     Indication: Pyrexia
     Dosage: UNK

REACTIONS (12)
  - Tubulointerstitial nephritis [Recovered/Resolved]
  - Vomiting [Recovered/Resolved]
  - Diarrhoea [Recovered/Resolved]
  - Decreased appetite [Recovered/Resolved]
  - Urticaria [Recovered/Resolved]
  - Face oedema [Recovered/Resolved]
  - Oedema peripheral [Recovered/Resolved]
  - Eosinophilia [Recovered/Resolved]
  - Normochromic normocytic anaemia [Recovered/Resolved]
  - Metabolic acidosis [Recovered/Resolved]
  - Proteinuria [Recovered/Resolved]
  - Kidney enlargement [Recovered/Resolved]
